FAERS Safety Report 8804911 (Version 4)
Quarter: 2013Q3

REPORT INFORMATION
  Report Type: Spontaneous
  Country: US (occurrence: US)
  Receive Date: 20120924
  Receipt Date: 20130827
  Transmission Date: 20140515
  Serious: Yes (Other)
  Sender: FDA-Public Use
  Company Number: US-PFIZER INC-2012234142

PATIENT
  Age: 65 Year
  Sex: Female
  Weight: 72.56 kg

DRUGS (6)
  1. LYRICA [Suspect]
     Indication: ANXIETY
     Dosage: 100 MG, 3X/DAY
     Route: 048
  2. LYRICA [Suspect]
     Indication: FIBROMYALGIA
     Dosage: UNK
     Dates: start: 20120620
  3. LYRICA [Suspect]
     Indication: NEURALGIA
  4. VICODIN [Concomitant]
     Indication: BACK PAIN
     Dosage: UNK
     Dates: end: 201210
  5. VALIUM [Concomitant]
     Dosage: UNK
  6. CORTEF [Concomitant]
     Indication: ADDISON^S DISEASE
     Dosage: UNK

REACTIONS (4)
  - Off label use [Unknown]
  - Lung neoplasm malignant [Recovered/Resolved]
  - Nerve injury [Recovered/Resolved]
  - Neuralgia [Recovered/Resolved]
